FAERS Safety Report 13648864 (Version 1)
Quarter: 2017Q2

REPORT INFORMATION
  Report Type: Spontaneous
  Country: RU (occurrence: RU)
  Receive Date: 20170613
  Receipt Date: 20170613
  Transmission Date: 20170830
  Serious: Yes (Hospitalization, Other)
  Sender: FDA-Public Use
  Company Number: RU-MYLANLABS-2017M1035108

PATIENT

DRUGS (10)
  1. ACETAZOLAMIDE. [Interacting]
     Active Substance: ACETAZOLAMIDE
     Indication: PRODUCT USED FOR UNKNOWN INDICATION
     Route: 065
     Dates: start: 20150909
  2. DICLOFENAC [Concomitant]
     Active Substance: DICLOFENAC
     Indication: PRODUCT USED FOR UNKNOWN INDICATION
     Dosage: 75MG 3ML 1 TIME PER DAY
     Route: 030
     Dates: start: 20150909
  3. INDAPAMIDE. [Interacting]
     Active Substance: INDAPAMIDE
     Indication: HYPERTENSION
     Dosage: 2.5MG PER DAY IN THE MORNING
     Route: 048
     Dates: start: 20150903
  4. TROPICAMIDE. [Interacting]
     Active Substance: TROPICAMIDE
     Indication: PRODUCT USED FOR UNKNOWN INDICATION
     Dosage: 0.5% EYE DROPS; 1 DROP 2 TIMES PER DAY
     Route: 061
     Dates: start: 20150909
  5. SULFACETAMIDE. [Concomitant]
     Active Substance: SULFACETAMIDE
     Indication: PRODUCT USED FOR UNKNOWN INDICATION
     Dosage: 20% SULFACYL SODIUM IN A DOSE OF 2 DROPS 3 TIMES PER DAY IN BOTH EYES
     Route: 061
     Dates: start: 20150903
  6. DEXAMETHASONE. [Concomitant]
     Active Substance: DEXAMETHASONE
     Indication: PRODUCT USED FOR UNKNOWN INDICATION
     Dosage: 2 DROPS 3 TIMES PER DAY IN BOTH EYES
     Route: 061
     Dates: start: 20150903
  7. DEXAMETHASONE. [Concomitant]
     Active Substance: DEXAMETHASONE
     Indication: PRODUCT USED FOR UNKNOWN INDICATION
     Dosage: 4MG 1ML 1 TIME PER DAY
     Route: 030
     Dates: start: 20150909
  8. DICLOFENAC [Concomitant]
     Active Substance: DICLOFENAC
     Dosage: 75MG 3ML 1 TIME PER DAY
     Route: 030
     Dates: start: 20150911
  9. TIMOLOL. [Suspect]
     Active Substance: TIMOLOL
     Indication: PRODUCT USED FOR UNKNOWN INDICATION
     Dosage: 0.5% SOLUTION; INSTILLATIONS OF 2 DROPS TWICE DAILY IN BOTH EYES
     Route: 061
     Dates: start: 20150903
  10. DIAZEPAM. [Concomitant]
     Active Substance: DIAZEPAM
     Indication: SEDATION
     Dosage: 2ML ONE TIME ON THE EVENT OF THE OPERATION
     Route: 030
     Dates: start: 20150903

REACTIONS (5)
  - Bradycardia [Unknown]
  - Hypotension [Unknown]
  - Hypotonia [Unknown]
  - Fall [Unknown]
  - Drug interaction [Unknown]

NARRATIVE: CASE EVENT DATE: 20150914
